FAERS Safety Report 17497205 (Version 4)
Quarter: 2020Q2

REPORT INFORMATION
  Report Type: Spontaneous
  Country: US (occurrence: US)
  Receive Date: 20200304
  Receipt Date: 20200402
  Transmission Date: 20200713
  Serious: No
  Sender: FDA-Public Use
  Company Number: US-JNJFOC-20200242520

PATIENT
  Sex: Female

DRUGS (1)
  1. TREMFYA [Suspect]
     Active Substance: GUSELKUMAB
     Indication: PSORIASIS
     Route: 058
     Dates: start: 201910

REACTIONS (5)
  - Contusion [Recovered/Resolved]
  - Drug delivery system malfunction [Unknown]
  - Product dose omission [Unknown]
  - Accidental exposure to product [Unknown]
  - Needle issue [Unknown]
